FAERS Safety Report 13676711 (Version 3)
Quarter: 2017Q3

REPORT INFORMATION
  Report Type: Spontaneous
  Country: US (occurrence: US)
  Receive Date: 20170622
  Receipt Date: 20170713
  Transmission Date: 20171127
  Serious: No
  Sender: FDA-Public Use
  Company Number: US-PFIZER INC-2017271050

PATIENT
  Age: 48 Year
  Sex: Female

DRUGS (1)
  1. XELJANZ XR [Suspect]
     Active Substance: TOFACITINIB CITRATE
     Indication: RHEUMATOID ARTHRITIS
     Dosage: 11 MG, 1X/DAY(Q DAY)
     Route: 048
     Dates: start: 20170525, end: 20170707

REACTIONS (8)
  - Muscle spasms [Unknown]
  - Spinal column stenosis [Unknown]
  - Sinusitis [Unknown]
  - Swelling [Not Recovered/Not Resolved]
  - Weight fluctuation [Unknown]
  - Peripheral swelling [Unknown]
  - Drug ineffective [Unknown]
  - Swelling [Unknown]
